FAERS Safety Report 24277997 (Version 2)
Quarter: 2024Q3

REPORT INFORMATION
  Report Type: Spontaneous
  Country: US (occurrence: US)
  Receive Date: 20240903
  Receipt Date: 20240919
  Transmission Date: 20241016
  Serious: Yes (Other)
  Sender: PAREXEL
  Company Number: US-BELCHER PHARMACEUTICALS, LLC-2024US002781

PATIENT

DRUGS (1)
  1. ABLYSINOL DEHYDRATED ALCOHOL [Suspect]
     Active Substance: ALCOHOL
     Indication: Rectal prolapse
     Dosage: 1 ML/AMPOULE
     Route: 054

REACTIONS (4)
  - Perirectal abscess [Recovered/Resolved]
  - Injection site pain [Recovered/Resolved]
  - Product complaint [Unknown]
  - Off label use [Unknown]
